FAERS Safety Report 9162051 (Version 1)
Quarter: 2013Q1

REPORT INFORMATION
  Report Type: Report from Study
  Country: CA (occurrence: CA)
  Receive Date: 20130314
  Receipt Date: 20130314
  Transmission Date: 20140127
  Serious: Yes (Other)
  Sender: FDA-Public Use
  Company Number: CA-JNJFOC-20130300648

PATIENT
  Age: 46 Year
  Sex: Female
  Weight: 48 kg

DRUGS (4)
  1. REMICADE [Suspect]
     Indication: BEHCET^S SYNDROME
     Route: 042
     Dates: start: 20110919
  2. NAPROSYN [Concomitant]
     Dosage: 375 (UNITS UNSPECIFIED) AS NEEDED
     Route: 065
  3. PREDNISONE [Concomitant]
     Dosage: DECREASING DOSE
     Route: 065
  4. CAL-500-D [Concomitant]
     Route: 065

REACTIONS (2)
  - Pharyngeal haemorrhage [Recovered/Resolved]
  - Aphthous stomatitis [Unknown]
